FAERS Safety Report 23776129 (Version 2)
Quarter: 2024Q2

REPORT INFORMATION
  Report Type: Spontaneous
  Country: BE (occurrence: BE)
  Receive Date: 20240424
  Receipt Date: 20240430
  Transmission Date: 20240715
  Serious: Yes (Other)
  Sender: FDA-Public Use
  Company Number: BE-LEO Pharma-369587

PATIENT
  Age: 51 Year

DRUGS (1)
  1. ADBRY [Suspect]
     Active Substance: TRALOKINUMAB-LDRM
     Indication: Dermatitis atopic
     Dates: start: 20231129, end: 20240315

REACTIONS (2)
  - Visual acuity reduced [Recovering/Resolving]
  - Macular oedema [Unknown]

NARRATIVE: CASE EVENT DATE: 20231201
